FAERS Safety Report 13161727 (Version 1)
Quarter: 2017Q1

REPORT INFORMATION
  Report Type: Spontaneous
  Country: SE (occurrence: SE)
  Receive Date: 20170130
  Receipt Date: 20170130
  Transmission Date: 20170428
  Serious: Yes (Hospitalization)
  Sender: FDA-Public Use
  Company Number: SE-ROCHE-1885695

PATIENT
  Age: 61 Year
  Sex: Female

DRUGS (11)
  1. ESOMEPRAZOLE [Concomitant]
     Active Substance: ESOMEPRAZOLE
     Route: 065
  2. SPIRONOLACTONE. [Concomitant]
     Active Substance: SPIRONOLACTONE
     Route: 065
  3. OVESTERIN [Concomitant]
     Active Substance: ESTRIOL
     Route: 065
  4. OCULENTUM SIMPLEX [Concomitant]
     Dosage: OCULENTUM SIMPLEX APL
     Route: 065
  5. ROACTEMRA [Suspect]
     Active Substance: TOCILIZUMAB
     Indication: RHEUMATOID ARTHRITIS
     Dosage: DOSERING: ^760^?MOST RECENT DOSE ON 19/OCT/2015
     Route: 042
     Dates: start: 20150114
  6. FOLACIN [Concomitant]
     Active Substance: FOLIC ACID
     Route: 065
  7. KALCIPOS-D FORTE [Concomitant]
     Route: 065
  8. PREDNISOLONE. [Concomitant]
     Active Substance: PREDNISOLONE
     Route: 065
  9. ACETYLCYSTEINE. [Concomitant]
     Active Substance: ACETYLCYSTEINE
     Route: 065
  10. VAGIFEM [Concomitant]
     Active Substance: ESTRADIOL
     Route: 065
  11. ALVEDON [Concomitant]
     Active Substance: ACETAMINOPHEN
     Dosage: ALVEDON FORTE
     Route: 065

REACTIONS (1)
  - Diverticulitis [Recovered/Resolved with Sequelae]

NARRATIVE: CASE EVENT DATE: 20151222
